FAERS Safety Report 20805588 (Version 2)
Quarter: 2022Q3

REPORT INFORMATION
  Report Type: Report from Study
  Country: KR (occurrence: KR)
  Receive Date: 20220510
  Receipt Date: 20220715
  Transmission Date: 20221026
  Serious: Yes (Hospitalization, Other)
  Sender: FDA-Public Use
  Company Number: KR-BRISTOL-MYERS SQUIBB COMPANY-BMS-2021-052710

PATIENT
  Age: 63 Year
  Sex: Male
  Weight: 45 kg

DRUGS (1)
  1. OPDIVO [Suspect]
     Active Substance: NIVOLUMAB
     Indication: Oesophageal adenocarcinoma
     Route: 065
     Dates: start: 20200302, end: 20211018

REACTIONS (2)
  - Hypothyroidism [Not Recovered/Not Resolved]
  - Spontaneous bacterial peritonitis [Recovered/Resolved]

NARRATIVE: CASE EVENT DATE: 20200622
